FAERS Safety Report 15723956 (Version 1)
Quarter: 2018Q4

REPORT INFORMATION
  Report Type: Spontaneous
  Country: CZ (occurrence: CZ)
  Receive Date: 20181214
  Receipt Date: 20181214
  Transmission Date: 20190205
  Serious: Yes (Other)
  Sender: FDA-Public Use
  Company Number: PHHY2018CZ184976

PATIENT
  Sex: Male

DRUGS (1)
  1. SIMBRINZA [Suspect]
     Active Substance: BRIMONIDINE TARTRATE\BRINZOLAMIDE
     Indication: CATARACT OPERATION
     Route: 047

REACTIONS (8)
  - Photophobia [Unknown]
  - Dizziness [Unknown]
  - Tachycardia [Unknown]
  - Foreign body in eye [Unknown]
  - Rash [Unknown]
  - Amnesia [Unknown]
  - Vision blurred [Unknown]
  - Headache [Unknown]
